FAERS Safety Report 15852087 (Version 1)
Quarter: 2019Q1

REPORT INFORMATION
  Report Type: Spontaneous
  Country: FR (occurrence: FR)
  Receive Date: 20190122
  Receipt Date: 20190122
  Transmission Date: 20190417
  Serious: Yes (Death, Hospitalization, Other)
  Sender: FDA-Public Use
  Company Number: FR-AUROBINDO-AUR-APL-2019-002484

PATIENT
  Age: 85 Year
  Sex: Female

DRUGS (3)
  1. PARACETAMOL TABLET [Suspect]
     Active Substance: ACETAMINOPHEN
     Indication: PRODUCT USED FOR UNKNOWN INDICATION
     Dosage: UNK (DAILY DOSE: EVERY DAY)
     Route: 048
     Dates: start: 20121210, end: 20130116
  2. RACECADOTRIL [Suspect]
     Active Substance: RACECADOTRIL
     Indication: PRODUCT USED FOR UNKNOWN INDICATION
     Dosage: UNK (DAILY DOSE: EVERY DAY)
     Route: 048
     Dates: start: 20121216, end: 20130116
  3. INNOHEP [Suspect]
     Active Substance: TINZAPARIN SODIUM
     Indication: PRODUCT USED FOR UNKNOWN INDICATION
     Dosage: UNK (FORMULATION: INJECTION, DAILY DOSE: EVERY DAY)
     Route: 058
     Dates: start: 20121214, end: 20130116

REACTIONS (2)
  - Cholestasis [Unknown]
  - Death [Fatal]

NARRATIVE: CASE EVENT DATE: 20121220
